FAERS Safety Report 25741360 (Version 1)
Quarter: 2025Q3

REPORT INFORMATION
  Report Type: Spontaneous
  Country: US (occurrence: None)
  Receive Date: 20250829
  Receipt Date: 20250829
  Transmission Date: 20251021
  Serious: No
  Sender: FDA-CTU
  Company Number: None

PATIENT

DRUGS (1)
  1. ENBREL [Suspect]
     Active Substance: ETANERCEPT

REACTIONS (5)
  - Ear infection [None]
  - Pharyngitis [None]
  - Rhinorrhoea [None]
  - Therapy interrupted [None]
  - Limb discomfort [None]
